FAERS Safety Report 7959310-3 (Version None)
Quarter: 2011Q4

REPORT INFORMATION
  Report Type: 
  Country: None (occurrence: None)
  Receive Date: 20111206
  Receipt Date: 20111128
  Transmission Date: 20120403
  Serious: Yes (Hospitalization)
  Sender: FDA-Public Use
  Company Number: ES-PFIZER INC-2011225932

PATIENT
  Age: 67 Year
  Sex: Male

DRUGS (6)
  1. AMIODARONE HCL [Suspect]
     Indication: ATRIAL FIBRILLATION
     Dosage: 200 MG, 1X/DAY
     Route: 048
     Dates: start: 20101015, end: 20110409
  2. COROPRES [Concomitant]
     Dosage: UNK
     Dates: start: 20101015
  3. INSPRA [Concomitant]
     Dosage: UNK
     Dates: start: 20101015
  4. ASTUDAL [Concomitant]
     Dosage: UNK
     Dates: start: 20101015
  5. ALLOPURINOL [Concomitant]
     Dosage: UNK
     Dates: start: 20050101
  6. ATORVASTATIN [Concomitant]
     Dosage: UNK
     Dates: start: 20101015

REACTIONS (5)
  - HYPOTENSION [None]
  - HYPOTHYROIDISM [None]
  - RENAL FAILURE ACUTE [None]
  - CONDUCT DISORDER [None]
  - DISORIENTATION [None]
